FAERS Safety Report 21291530 (Version 1)
Quarter: 2022Q3

REPORT INFORMATION
  Report Type: Report from Study
  Country: MX (occurrence: MX)
  Receive Date: 20220903
  Receipt Date: 20220903
  Transmission Date: 20221026
  Serious: Yes (Other)
  Sender: FDA-Public Use
  Company Number: MX-NOVARTISPH-NVSC2022MX050456

PATIENT
  Age: 69 Year
  Sex: Female

DRUGS (4)
  1. DIOVAN [Suspect]
     Active Substance: VALSARTAN
     Indication: Hypertension
     Dosage: 160 MG, QD
     Route: 048
     Dates: start: 20220207
  2. DIOVAN [Suspect]
     Active Substance: VALSARTAN
     Dosage: 0.5 DOSAGE FORM, QD, (80 MG)
     Route: 065
  3. DIOVAN [Suspect]
     Active Substance: VALSARTAN
     Dosage: 160 MG
     Route: 065
  4. EUTHYROX [Concomitant]
     Active Substance: LEVOTHYROXINE SODIUM
     Indication: Hypothyroidism
     Dosage: 75 MG
     Route: 048
     Dates: start: 2012

REACTIONS (9)
  - Eye infection [Not Recovered/Not Resolved]
  - Malaise [Unknown]
  - Vision blurred [Unknown]
  - Chills [Unknown]
  - Hypotension [Recovering/Resolving]
  - Fatigue [Unknown]
  - Hypertension [Unknown]
  - Drug ineffective [Unknown]
  - Wrong technique in product usage process [Unknown]

NARRATIVE: CASE EVENT DATE: 20220207
